FAERS Safety Report 19820991 (Version 1)
Quarter: 2021Q3

REPORT INFORMATION
  Report Type: Spontaneous
  Country: GB (occurrence: GB)
  Receive Date: 20210913
  Receipt Date: 20210913
  Transmission Date: 20211014
  Serious: Yes (Hospitalization)
  Sender: FDA-Public Use
  Company Number: GB-MYLANLABS-2021M1059732

PATIENT
  Age: 33 Year
  Sex: Male

DRUGS (12)
  1. OXYCODONE [Suspect]
     Active Substance: OXYCODONE
     Dosage: 140 MG,VIA CONTINUOUS SC INFUSION
     Route: 058
  2. DEXAMETHASONE. [Suspect]
     Active Substance: DEXAMETHASONE
     Indication: ANALGESIC THERAPY
     Dosage: 2 MILLIGRAM, QD
     Route: 042
  3. OXYCODONE [Suspect]
     Active Substance: OXYCODONE
     Indication: ANALGESIC THERAPY
     Dosage: 120 MG, BID,MODIFIED RELEASE
     Route: 048
  4. OXYCODONE [Suspect]
     Active Substance: OXYCODONE
     Dosage: 40 MG,IMMEDIATE RELEASE; USUALLY BETWEEN 4 AND 6 TIMES DAILY
     Route: 048
  5. COCODAMOL [Suspect]
     Active Substance: ACETAMINOPHEN\CODEINE PHOSPHATE
     Indication: ANALGESIC THERAPY
     Dosage: UNK UNK, QID, 30/500 MG FOUR TIMES A DAY AND AS REQUIRED
     Route: 065
  6. KETAMINE [Suspect]
     Active Substance: KETAMINE
     Indication: HYPERAESTHESIA
     Dosage: 500 MILLIGRAM, QD,BURST REGIMEN WHICH WAS TITRATED OVER 3 DAYS...
     Route: 058
  7. CLONAZEPAM. [Concomitant]
     Active Substance: CLONAZEPAM
     Indication: PRODUCT USED FOR UNKNOWN INDICATION
     Dosage: 1 MILLIGRAM, NOCTE
     Route: 065
  8. PARACETAMOL [Suspect]
     Active Substance: ACETAMINOPHEN
     Indication: INFLAMMATION
     Dosage: 1 GRAM, QID,FOUR TIMES A DAY
     Route: 042
  9. CYCLIZINE [Suspect]
     Active Substance: CYCLIZINE
     Indication: HYPERAESTHESIA
     Dosage: 150 MG,VIA CONTINUOUS SC INFUSION
     Route: 058
  10. PARACETAMOL [Suspect]
     Active Substance: ACETAMINOPHEN
     Indication: HYPERAESTHESIA
  11. OXYCODONE [Suspect]
     Active Substance: OXYCODONE
     Indication: ANALGESIC THERAPY
     Dosage: 120 MG,VIA CONTINUOUS SC INFUSION
     Route: 058
  12. DEXAMETHASONE. [Suspect]
     Active Substance: DEXAMETHASONE
     Indication: HYPERAESTHESIA
     Dosage: 8 MILLIGRAM
     Route: 042

REACTIONS (3)
  - Rectal haemorrhage [Recovered/Resolved]
  - Hyperaesthesia [Recovered/Resolved]
  - Treatment failure [Unknown]
